FAERS Safety Report 11897711 (Version 1)
Quarter: 2016Q1

REPORT INFORMATION
  Report Type: Spontaneous
  Country: US (occurrence: None)
  Receive Date: 20160106
  Receipt Date: 20160106
  Transmission Date: 20160526
  Serious: Yes (Hospitalization)
  Sender: FDA-Public Use
  Company Number: None

PATIENT
  Age: 60 Year
  Sex: Male
  Weight: 193 kg

DRUGS (7)
  1. BRILINTA [Suspect]
     Active Substance: TICAGRELOR
     Indication: ANTICOAGULANT THERAPY
     Dosage: 1 PILL
     Route: 048
     Dates: start: 20150131, end: 20151228
  2. ASPIRIN. [Concomitant]
     Active Substance: ASPIRIN
  3. EFFLIENT [Concomitant]
  4. VERIFIED BARE-METAL STENT [Suspect]
     Active Substance: DEVICE
     Dates: start: 20150129
  5. ATORVASTATIN [Concomitant]
     Active Substance: ATORVASTATIN
  6. LISINOPRIL. [Concomitant]
     Active Substance: LISINOPRIL
  7. METOPROLOL. [Concomitant]
     Active Substance: METOPROLOL

REACTIONS (4)
  - Contusion [None]
  - Drug ineffective [None]
  - Acute myocardial infarction [None]
  - Device occlusion [None]

NARRATIVE: CASE EVENT DATE: 20151029
